FAERS Safety Report 8608691-6 (Version None)
Quarter: 2012Q3

REPORT INFORMATION
  Report Type: 
  Country: None (occurrence: None)
  Receive Date: 20120821
  Receipt Date: 20120814
  Transmission Date: 20120928
  Serious: Yes (Hospitalization)
  Sender: FDA-Public Use
  Company Number: US-B.I. PHARMACEUTICALS,INC./RIDGEFIELD-2012-BP-19263BP

PATIENT
  Age: 68 Year
  Sex: Male

DRUGS (1)
  1. PRADAXA [Suspect]
     Indication: CARDIAC DISORDER
     Dosage: 300 MG
     Route: 048
     Dates: start: 20120101

REACTIONS (1)
  - CEREBROVASCULAR ACCIDENT [None]
